FAERS Safety Report 4558428-5 (Version None)
Quarter: 2005Q1

REPORT INFORMATION
  Report Type: 
  Country: None (occurrence: None)
  Receive Date: 20050119
  Receipt Date: 20041203
  Transmission Date: 20050727
  Serious: Yes (Other)
  Sender: FDA-Public Use
  Company Number: C-04-0065

PATIENT
  Age: 58 Year
  Sex: Male
  Weight: 74.8435 kg

DRUGS (2)
  1. CLINDAMYCIN PHOSPHATE [Suspect]
     Indication: DERMATITIS
     Dosage: USE AS NEEDED, TOPICAL
     Route: 061
     Dates: start: 20040801
  2. PREVACID [Concomitant]

REACTIONS (2)
  - DRUG INEFFECTIVE [None]
  - PHARMACEUTICAL PRODUCT COMPLAINT [None]
